FAERS Safety Report 4829299-4 (Version None)
Quarter: 2005Q4

REPORT INFORMATION
  Report Type: 
  Country: None (occurrence: None)
  Receive Date: 20051116
  Receipt Date: 20051114
  Transmission Date: 20060501
  Serious: Yes (Life-Threatening)
  Sender: FDA-Public Use
  Company Number: DE-GLAXOSMITHKLINE-D0047957A

PATIENT
  Age: 52 Year
  Sex: Female
  Weight: 85 kg

DRUGS (1)
  1. SEROXAT [Suspect]
     Indication: DEPRESSION
     Route: 048
     Dates: start: 19940101, end: 20050701

REACTIONS (10)
  - ANOREXIA [None]
  - ASTHENIA [None]
  - CHILLS [None]
  - CRYING [None]
  - DEPRESSION [None]
  - NAUSEA [None]
  - NIGHTMARE [None]
  - PARAESTHESIA [None]
  - SUICIDAL IDEATION [None]
  - VOMITING [None]
